FAERS Safety Report 6982073-5 (Version None)
Quarter: 2010Q3

REPORT INFORMATION
  Report Type: 
  Country: None (occurrence: None)
  Receive Date: 20100909
  Receipt Date: 20100824
  Transmission Date: 20110219
  Serious: Yes (Hospitalization)
  Sender: FDA-Public Use
  Company Number: FKO201000358

PATIENT
  Age: 88 Year
  Sex: Female

DRUGS (3)
  1. METHOTREXATE [Suspect]
     Indication: RHEUMATOID ARTHRITIS
     Dosage: 7857 MG (12.5 MG, 1 IN 1 WK)
  2. PREDNISONE (PREDNISONE) (PREDNISONE) [Concomitant]
  3. HYDROCORTISONE (HYDROCORTISONE) (HYDROCORTISONE) [Concomitant]

REACTIONS (3)
  - ARTHRITIS BACTERIAL [None]
  - JOINT EFFUSION [None]
  - MUSCULOSKELETAL PAIN [None]
